FAERS Safety Report 9973901 (Version 1)
Quarter: 2014Q1

REPORT INFORMATION
  Report Type: Spontaneous
  Country: US (occurrence: US)
  Receive Date: 20140306
  Receipt Date: 20140306
  Transmission Date: 20141002
  Serious: No
  Sender: FDA-Public Use
  Company Number: US-ABBVIE-13P-163-1154874-00

PATIENT
  Sex: Female
  Weight: 58.11 kg

DRUGS (4)
  1. HUMIRA [Suspect]
     Indication: RHEUMATOID ARTHRITIS
     Route: 058
     Dates: end: 2010
  2. HUMIRA [Suspect]
     Route: 058
     Dates: end: 2011
  3. CIMZIA [Suspect]
     Indication: RHEUMATOID ARTHRITIS
     Dates: start: 2011, end: 2011
  4. REMICADE [Suspect]
     Indication: RHEUMATOID ARTHRITIS
     Dates: start: 2011, end: 2011

REACTIONS (9)
  - Infusion site extravasation [Recovered/Resolved]
  - Herpes zoster [Recovered/Resolved]
  - Dry skin [Recovered/Resolved]
  - Skin exfoliation [Recovered/Resolved]
  - Erythema [Not Recovered/Not Resolved]
  - Local swelling [Recovered/Resolved]
  - Dermatitis psoriasiform [Recovered/Resolved]
  - Blood pressure increased [Not Recovered/Not Resolved]
  - Skin discolouration [Recovered/Resolved]
